FAERS Safety Report 20081118 (Version 4)
Quarter: 2022Q4

REPORT INFORMATION
  Report Type: Spontaneous
  Country: CA (occurrence: CA)
  Receive Date: 20211117
  Receipt Date: 20221216
  Transmission Date: 20230112
  Serious: Yes (Other)
  Sender: FDA-Public Use
  Company Number: CA-PFIZER INC-2021524569

PATIENT
  Age: 70 Year
  Sex: Female

DRUGS (7)
  1. RUXIENCE [Suspect]
     Active Substance: RITUXIMAB-PVVR
     Indication: Rheumatoid arthritis
     Dosage: 1000 MG (ON DAY 1 AND DAY 15)
     Route: 042
     Dates: start: 20210504, end: 20210518
  2. RUXIENCE [Suspect]
     Active Substance: RITUXIMAB-PVVR
     Dosage: 1000 MG (ON DAY 1 AND DAY 15)
     Route: 042
     Dates: start: 20211104, end: 20211118
  3. RUXIENCE [Suspect]
     Active Substance: RITUXIMAB-PVVR
     Dosage: 1000 MG (ON DAY 1 AND DAY 15)
     Route: 042
     Dates: start: 20220518, end: 20220601
  4. RUXIENCE [Suspect]
     Active Substance: RITUXIMAB-PVVR
     Dosage: 1000 MG (ON DAY 1 AND DAY 15)
     Route: 042
     Dates: start: 20221123, end: 20221207
  5. RUXIENCE [Suspect]
     Active Substance: RITUXIMAB-PVVR
     Dosage: 1000 MG (ON DAY 1 AND DAY 15)
     Route: 042
     Dates: start: 20221123
  6. RUXIENCE [Suspect]
     Active Substance: RITUXIMAB-PVVR
     Dosage: 1000 MG (ON DAY 1 AND DAY 15)
     Route: 042
     Dates: start: 20221207
  7. SULFASALAZINE [Concomitant]
     Active Substance: SULFASALAZINE
     Dosage: 1 DF

REACTIONS (9)
  - Biliary colic [Unknown]
  - C-reactive protein increased [Not Recovered/Not Resolved]
  - Erythema [Recovered/Resolved]
  - Flushing [Recovered/Resolved]
  - Inflammation [Not Recovered/Not Resolved]
  - Musculoskeletal stiffness [Not Recovered/Not Resolved]
  - Swelling face [Recovered/Resolved]
  - Abdominal discomfort [Unknown]
  - Stress [Unknown]

NARRATIVE: CASE EVENT DATE: 20210505
